FAERS Safety Report 20517132 (Version 1)
Quarter: 2022Q1

REPORT INFORMATION
  Report Type: Report from Study
  Country: DE (occurrence: DE)
  Receive Date: 20220225
  Receipt Date: 20220225
  Transmission Date: 20220424
  Serious: Yes (Death, Hospitalization, Other)
  Sender: FDA-Public Use
  Company Number: DE-ALS-000533

PATIENT
  Age: 84 Year
  Sex: Female

DRUGS (1)
  1. METFORMIN [Suspect]
     Active Substance: METFORMIN HYDROCHLORIDE
     Indication: Type 2 diabetes mellitus
     Route: 065

REACTIONS (10)
  - Lactic acidosis [Fatal]
  - Vomiting [Unknown]
  - Mechanical ileus [Fatal]
  - Aspiration [Unknown]
  - Asphyxia [Unknown]
  - Resuscitation [Unknown]
  - Laparotomy [Unknown]
  - Adhesiolysis [Unknown]
  - Cardiovascular disorder [Unknown]
  - Multiple organ dysfunction syndrome [Fatal]
